FAERS Safety Report 10991789 (Version 3)
Quarter: 2015Q2

REPORT INFORMATION
  Report Type: Report from Study
  Country: BR (occurrence: BR)
  Receive Date: 20150406
  Receipt Date: 20150413
  Transmission Date: 20150821
  Serious: Yes (Other)
  Sender: FDA-Public Use
  Company Number: PHHY2015BR040469

PATIENT
  Sex: Female
  Weight: 47 kg

DRUGS (7)
  1. GALVUS MET [Suspect]
     Active Substance: METFORMIN HYDROCHLORIDE\VILDAGLIPTIN
     Indication: DIABETES MELLITUS
     Dosage: 1 DF (1000/50 MG), BID ONE IN THE MORNING AND ONE AT NIGHT
     Route: 065
  2. LOSARTAN [Suspect]
     Active Substance: LOSARTAN
     Indication: BLOOD PRESSURE ABNORMAL
     Dosage: 50 MG, QD IN THE MORNING
     Route: 065
  3. VITAMIN D [Suspect]
     Active Substance: CHOLECALCIFEROL
     Indication: ANAEMIA
     Dosage: UNK UNK, QD AFTER LUNCH
     Route: 065
  4. ACETYLSALICYLIC ACID [Suspect]
     Active Substance: ASPIRIN
     Indication: COAGULOPATHY
     Dosage: 100 MG, QD AFTER LUNCH
  5. ATENOLOL. [Suspect]
     Active Substance: ATENOLOL
     Indication: HYPERTENSION
     Dosage: 25 MG, BID ONE IN THE MORNING AND ONE AT NIGHT
     Route: 065
  6. CALCIUM CARBONATE. [Suspect]
     Active Substance: CALCIUM CARBONATE
     Indication: PRODUCT USED FOR UNKNOWN INDICATION
     Route: 065
  7. OSTEOFORM//ALENDRONATE SODIUM [Suspect]
     Active Substance: ALENDRONATE SODIUM
     Indication: BONE DISORDER
     Dosage: 70 MG, QW
     Route: 065

REACTIONS (2)
  - Gait disturbance [Unknown]
  - Foot fracture [Unknown]
